FAERS Safety Report 9239183 (Version 2)
Quarter: 2013Q2

REPORT INFORMATION
  Report Type: Report from Study
  Country: AR (occurrence: AR)
  Receive Date: 20130418
  Receipt Date: 20130516
  Transmission Date: 20140414
  Serious: Yes (Death, Hospitalization, Other)
  Sender: FDA-Public Use
  Company Number: PHHY2013AR037036

PATIENT
  Age: 80 Year
  Sex: Female

DRUGS (3)
  1. GALVUS MET [Suspect]
     Indication: DIABETES MELLITUS
     Dosage: 3 DF, DAILY  (850 MG METF, 50 MG VILD)
     Route: 048
     Dates: end: 20130410
  2. DIOVAN [Suspect]
     Indication: HYPERTENSION
     Dosage: 1 DF, DAILY (160 MG VALS)
     Route: 048
     Dates: end: 20130410
  3. DIOVAN [Suspect]
     Indication: HYPERTENSION

REACTIONS (5)
  - Cardiac arrest [Fatal]
  - Cerebrovascular accident [Not Recovered/Not Resolved]
  - Pulmonary oedema [Not Recovered/Not Resolved]
  - Diabetes mellitus [Unknown]
  - Blood pressure inadequately controlled [Unknown]
